FAERS Safety Report 16849285 (Version 1)
Quarter: 2019Q3

REPORT INFORMATION
  Report Type: Spontaneous
  Country: US (occurrence: US)
  Receive Date: 20190925
  Receipt Date: 20190925
  Transmission Date: 20191005
  Serious: No
  Sender: FDA-Public Use
  Company Number: US-DRREDDYS-USA/USA/19/0114245

PATIENT
  Sex: Female

DRUGS (2)
  1. HABITROL [Suspect]
     Active Substance: NICOTINE
     Indication: TOBACCO USER
     Dosage: 1ST BOX
     Route: 062
     Dates: start: 20190617
  2. HABITROL [Suspect]
     Active Substance: NICOTINE
     Dosage: 2ND BOX
     Route: 062
     Dates: start: 20190708

REACTIONS (3)
  - Treatment noncompliance [Unknown]
  - Product use issue [Unknown]
  - Peripheral swelling [Unknown]
